FAERS Safety Report 11506004 (Version 1)
Quarter: 2015Q3

REPORT INFORMATION
  Report Type: Spontaneous
  Country: US (occurrence: US)
  Receive Date: 20150915
  Receipt Date: 20150915
  Transmission Date: 20151125
  Serious: Yes (Hospitalization)
  Sender: FDA-Public Use
  Company Number: US-ROCHE-697145

PATIENT
  Age: 30 Year
  Sex: Female

DRUGS (2)
  1. PEGASYS [Suspect]
     Active Substance: PEGINTERFERON ALFA-2A
     Indication: HEPATITIS C
     Dosage: FORM: PRE-FILLED SYRINGE
     Route: 058
     Dates: start: 20100325, end: 20110130
  2. RIBASPHERE [Suspect]
     Active Substance: RIBAVIRIN
     Indication: HEPATITIS C
     Dosage: IN DIVIDED DOSES
     Route: 048
     Dates: start: 20100325, end: 20110130

REACTIONS (19)
  - Vomiting [Not Recovered/Not Resolved]
  - Influenza like illness [Recovered/Resolved]
  - White blood cell count decreased [Unknown]
  - Blood urine present [Unknown]
  - Dizziness [Not Recovered/Not Resolved]
  - Headache [Not Recovered/Not Resolved]
  - Urinary tract infection [Unknown]
  - Nausea [Not Recovered/Not Resolved]
  - Ear infection [Unknown]
  - Contusion [Not Recovered/Not Resolved]
  - Nasopharyngitis [Not Recovered/Not Resolved]
  - Facial pain [Not Recovered/Not Resolved]
  - Dyspepsia [Not Recovered/Not Resolved]
  - Hypersensitivity [Not Recovered/Not Resolved]
  - Pyrexia [Not Recovered/Not Resolved]
  - Infection [Unknown]
  - Breast discharge [Unknown]
  - Injection site mass [Not Recovered/Not Resolved]
  - Sensory disturbance [Not Recovered/Not Resolved]

NARRATIVE: CASE EVENT DATE: 20100325
